FAERS Safety Report 23117121 (Version 1)
Quarter: 2023Q4

REPORT INFORMATION
  Report Type: Spontaneous
  Country: CA (occurrence: CA)
  Receive Date: 20231027
  Receipt Date: 20231027
  Transmission Date: 20240109
  Serious: Yes (Other)
  Sender: FDA-Public Use
  Company Number: CA-TEVA-2023-CA-2939048

PATIENT
  Age: 67 Year
  Sex: Male
  Weight: 245 kg

DRUGS (11)
  1. METOPROLOL [Suspect]
     Active Substance: METOPROLOL
     Indication: Product used for unknown indication
     Dosage: 50 MILLIGRAM DAILY;
     Route: 065
  2. METOPROLOL [Suspect]
     Active Substance: METOPROLOL
     Dosage: 150 MILLIGRAM DAILY;
     Route: 065
  3. METOPROLOL [Suspect]
     Active Substance: METOPROLOL
     Dosage: 200 MILLIGRAM DAILY;
     Route: 065
  4. ROSUVASTATIN CALCIUM [Suspect]
     Active Substance: ROSUVASTATIN CALCIUM
     Indication: Atrial flutter
     Dosage: 20 MILLIGRAM DAILY;
     Route: 048
  5. AMIODARONE [Concomitant]
     Active Substance: AMIODARONE
     Indication: Product used for unknown indication
     Dosage: 400 MILLIGRAM DAILY;
  6. AMIODARONE [Concomitant]
     Active Substance: AMIODARONE
     Dosage: 800 MILLIGRAM DAILY;
  7. AMIODARONE [Concomitant]
     Active Substance: AMIODARONE
     Dosage: 400 MILLIGRAM DAILY;
  8. APIXABAN [Concomitant]
     Active Substance: APIXABAN
     Indication: Product used for unknown indication
     Dosage: 10 MILLIGRAM DAILY;
  9. CANDESARTAN [Concomitant]
     Active Substance: CANDESARTAN
     Indication: Product used for unknown indication
     Dosage: 8 MILLIGRAM DAILY;
  10. FUROSEMIDE [Concomitant]
     Active Substance: FUROSEMIDE
     Indication: Product used for unknown indication
  11. INSULIN GLARGINE [Concomitant]
     Active Substance: INSULIN GLARGINE
     Indication: Product used for unknown indication

REACTIONS (4)
  - Hypotension [Unknown]
  - Presyncope [Unknown]
  - Drug ineffective for unapproved indication [Unknown]
  - Off label use [Unknown]
